FAERS Safety Report 24122434 (Version 2)
Quarter: 2024Q3

REPORT INFORMATION
  Report Type: Other
  Country: NL (occurrence: NL)
  Receive Date: 20240723
  Receipt Date: 20240723
  Transmission Date: 20241017
  Serious: Yes (Other)
  Sender: STRIDES
  Company Number: None

PATIENT
  Age: 75 Year
  Sex: Female
  Weight: 63 kg

DRUGS (4)
  1. GABAPENTIN [Suspect]
     Active Substance: GABAPENTIN
     Indication: Neuropathy peripheral
     Dosage: CAPSULE, 300 MG (MILLIGRAM),
     Route: 065
     Dates: start: 20240501
  2. LORAZEPAM [Suspect]
     Active Substance: LORAZEPAM
     Indication: Depression
     Dosage: UNK
     Route: 065
     Dates: start: 20160101
  3. ACETAMINOPHEN [Suspect]
     Active Substance: ACETAMINOPHEN
     Indication: Depression
     Dosage: 8 PER DAG
     Route: 065
     Dates: start: 20160101
  4. MIRTAZAPINE [Suspect]
     Active Substance: MIRTAZAPINE
     Indication: Depression
     Dosage: 8 PER DAG
     Route: 065
     Dates: start: 20160101

REACTIONS (2)
  - Tinnitus [Not Recovered/Not Resolved]
  - Product substitution issue [Unknown]
